FAERS Safety Report 14241773 (Version 2)
Quarter: 2017Q4

REPORT INFORMATION
  Report Type: Spontaneous
  Country: CA (occurrence: CA)
  Receive Date: 20171201
  Receipt Date: 20171201
  Transmission Date: 20180321
  Serious: Yes (Other)
  Sender: FDA-Public Use
  Company Number: CA-BAXTER-2017BAX040022

PATIENT
  Age: 32 Year
  Sex: Female

DRUGS (9)
  1. APO-LORAZEPAM [Suspect]
     Active Substance: LORAZEPAM
     Indication: PRODUCT USED FOR UNKNOWN INDICATION
     Route: 042
  2. PHENOBARBITAL. [Suspect]
     Active Substance: PHENOBARBITAL
     Indication: PRODUCT USED FOR UNKNOWN INDICATION
     Dosage: DOSAGE FORM: NOT SPECIFIED
     Route: 065
  3. PHENYTOIN SODIUM. [Suspect]
     Active Substance: PHENYTOIN SODIUM
     Indication: PRODUCT USED FOR UNKNOWN INDICATION
     Route: 065
  4. APO-VALPROIC [Suspect]
     Active Substance: VALPROIC ACID
     Indication: PRODUCT USED FOR UNKNOWN INDICATION
     Route: 065
  5. FORANE [Suspect]
     Active Substance: ISOFLURANE
     Indication: PRODUCT USED FOR UNKNOWN INDICATION
     Route: 065
  6. APO DIAZEPAM [Suspect]
     Active Substance: DIAZEPAM
     Indication: PRODUCT USED FOR UNKNOWN INDICATION
     Route: 042
  7. PARALDEHYDE [Suspect]
     Active Substance: PARALDEHYDE
     Indication: PRODUCT USED FOR UNKNOWN INDICATION
     Route: 065
  8. PHENOBARBITAL. [Suspect]
     Active Substance: PHENOBARBITAL
     Route: 065
  9. LIDOCAINE. [Suspect]
     Active Substance: LIDOCAINE
     Indication: PRODUCT USED FOR UNKNOWN INDICATION
     Dosage: DOSAGE FORM: OINTMENT TOPICAL
     Route: 061

REACTIONS (3)
  - Status epilepticus [Unknown]
  - Drug ineffective [Unknown]
  - Hypotension [Unknown]
